FAERS Safety Report 4862106-2 (Version None)
Quarter: 2005Q4

REPORT INFORMATION
  Report Type: 
  Country: None (occurrence: None)
  Receive Date: 20051221
  Receipt Date: 20051214
  Transmission Date: 20060501
  Serious: Yes (Other)
  Sender: FDA-Public Use
  Company Number: GB-BOEHRINGER INGELHEIM PHARMACEUTICALS, INC.-2005-UK-02658UK

PATIENT
  Age: 56 Year
  Sex: Female

DRUGS (4)
  1. CLONIDINE [Suspect]
     Indication: MENOPAUSAL SYMPTOMS
     Dosage: 0.3 MG ONCE
     Route: 048
     Dates: start: 20051027, end: 20051027
  2. PAROXETINE HCL [Concomitant]
     Indication: HOT FLUSH
     Route: 048
     Dates: start: 20051020, end: 20051023
  3. ATENOLOL [Concomitant]
     Route: 048
  4. SIMVASTATIN [Concomitant]
     Route: 048

REACTIONS (3)
  - FALL [None]
  - LIMB INJURY [None]
  - LOSS OF CONSCIOUSNESS [None]
